FAERS Safety Report 4925776-6 (Version None)
Quarter: 2006Q1

REPORT INFORMATION
  Report Type: 
  Country: None (occurrence: None)
  Receive Date: 20060228
  Receipt Date: 20050317
  Transmission Date: 20060701
  Serious: No
  Sender: FDA-Public Use
  Company Number: US-GLAXOSMITHKLINE-A0550494A

PATIENT
  Age: 1 Year
  Sex: Female

DRUGS (3)
  1. LAMICTAL [Suspect]
     Indication: EPILEPSY
     Dosage: 5MG THREE TIMES PER DAY
     Route: 048
     Dates: end: 20050108
  2. TEGRETOL [Suspect]
     Dosage: 2ML THREE TIMES PER DAY
  3. PHENOBARBITAL TAB [Suspect]
     Dosage: 75MG PER DAY

REACTIONS (1)
  - RASH [None]
